FAERS Safety Report 10483823 (Version 1)
Quarter: 2014Q3

REPORT INFORMATION
  Report Type: Spontaneous
  Country: US (occurrence: None)
  Receive Date: 20140929
  Receipt Date: 20140929
  Transmission Date: 20150326
  Serious: No
  Sender: FDA-Public Use
  Company Number: None

PATIENT
  Age: 52 Year
  Sex: Male
  Weight: 113.4 kg

DRUGS (1)
  1. RABEPRAZOLE [Suspect]
     Active Substance: RABEPRAZOLE
     Indication: GASTROOESOPHAGEAL REFLUX DISEASE
     Route: 048
     Dates: start: 20140802, end: 20140928

REACTIONS (7)
  - Gastrooesophageal reflux disease [None]
  - Product coating issue [None]
  - Abdominal pain upper [None]
  - Abdominal pain [None]
  - Drug ineffective [None]
  - Product quality issue [None]
  - Dysgeusia [None]

NARRATIVE: CASE EVENT DATE: 20140928
